FAERS Safety Report 18635618 (Version 3)
Quarter: 2021Q1

REPORT INFORMATION
  Report Type: Spontaneous
  Country: IN (occurrence: IN)
  Receive Date: 20201218
  Receipt Date: 20210205
  Transmission Date: 20210419
  Serious: No
  Sender: FDA-Public Use
  Company Number: IN-JNJFOC-20201229047

PATIENT

DRUGS (3)
  1. DUROGESIC [Suspect]
     Active Substance: FENTANYL
  2. DUROGESIC [Suspect]
     Active Substance: FENTANYL
     Indication: PRODUCT USED FOR UNKNOWN INDICATION
     Dosage: STRENGTH: 25.00 MCG/HR
     Route: 062
  3. DUROGESIC [Suspect]
     Active Substance: FENTANYL

REACTIONS (1)
  - Product packaging quantity issue [Unknown]
